FAERS Safety Report 7446996-5 (Version None)
Quarter: 2011Q2

REPORT INFORMATION
  Report Type: 
  Country: None (occurrence: None)
  Receive Date: 20110429
  Receipt Date: 20110420
  Transmission Date: 20111010
  Serious: Yes (Other)
  Sender: FDA-Public Use
  Company Number: US-US-EMD SERONO, INC.-7055355

PATIENT
  Sex: Male
  Weight: 108 kg

DRUGS (2)
  1. REBIF [Suspect]
     Indication: PRODUCT USED FOR UNKNOWN INDICATION
     Route: 058
     Dates: start: 20040101, end: 20110215
  2. REBIF [Suspect]
     Route: 058
     Dates: start: 20110406

REACTIONS (1)
  - ASTROCYTOMA [None]
